FAERS Safety Report 10574050 (Version 2)
Quarter: 2014Q4

REPORT INFORMATION
  Report Type: Report from Study
  Country: CZ (occurrence: CZ)
  Receive Date: 20141110
  Receipt Date: 20141110
  Transmission Date: 20150529
  Serious: Yes (Hospitalization, Other)
  Sender: FDA-Public Use
  Company Number: CZ-GLAXOSMITHKLINE-CZ2014GSK000852

PATIENT
  Age: 4 Year
  Sex: Female
  Weight: 15 kg

DRUGS (12)
  1. BLINDED TRAMETINIB [Suspect]
     Active Substance: TRAMETINIB
     Dosage: 0.375 MG, QD
     Route: 048
     Dates: start: 20131218, end: 20140917
  2. BLINDED DABRAFENIB [Suspect]
     Active Substance: DABRAFENIB
     Dosage: 0.6 MG, QD
     Dates: start: 20131022
  3. BLINDED TRAMETINIB [Suspect]
     Active Substance: TRAMETINIB
     Dosage: 0.6 MG, QD
     Dates: start: 20131022
  4. TRAMETINIB [Suspect]
     Active Substance: TRAMETINIB
     Dosage: 0.6 MG, QD
     Route: 048
     Dates: start: 20141022
  5. BLINDED DABRAFENIB [Suspect]
     Active Substance: DABRAFENIB
     Dosage: 0.375 MG, QD
     Route: 048
     Dates: start: 20131218, end: 20140917
  6. BLINDED TRAMETINIB [Suspect]
     Active Substance: TRAMETINIB
     Dosage: 0.375 MG, QD
     Route: 048
     Dates: start: 20131218, end: 20140917
  7. BLINDED DABRAFENIB [Suspect]
     Active Substance: DABRAFENIB
     Dosage: 0.375 MG, QD
     Route: 048
     Dates: start: 20131218, end: 20140917
  8. TRAMETINIB [Suspect]
     Active Substance: TRAMETINIB
     Dosage: 0.375 MG, SINGLE
     Route: 048
     Dates: start: 20131218, end: 20140917
  9. BLINDED INVESTIGATIONAL DRUG, UNSPECIFIED [Suspect]
     Active Substance: INVESTIGATIONAL PRODUCT
     Dosage: 0.6 MG, QD
     Dates: start: 20131022
  10. BLINDED TRAMETINIB [Suspect]
     Active Substance: TRAMETINIB
     Dosage: 0.6 MG, QD
     Dates: start: 20131022
  11. BLINDED INVESTIGATIONAL DRUG, UNSPECIFIED [Suspect]
     Active Substance: INVESTIGATIONAL PRODUCT
     Dosage: 0.375 MG, QD
     Route: 048
     Dates: start: 20131218, end: 20140917
  12. BLINDED DABRAFENIB [Suspect]
     Active Substance: DABRAFENIB
     Dosage: 0.6 MG, QD
     Dates: start: 20131022

REACTIONS (5)
  - Inflammatory marker increased [Recovered/Resolved]
  - Pseudomeningocele [Recovered/Resolved]
  - Body temperature increased [Recovered/Resolved]
  - Pyrexia [Recovered/Resolved]
  - Diarrhoea [Recovered/Resolved]

NARRATIVE: CASE EVENT DATE: 20140917
